FAERS Safety Report 21124191 (Version 2)
Quarter: 2022Q3

REPORT INFORMATION
  Report Type: Spontaneous
  Country: US (occurrence: US)
  Receive Date: 20220725
  Receipt Date: 20220822
  Transmission Date: 20221026
  Serious: Yes (Other)
  Sender: FDA-Public Use
  Company Number: US-Shilpa Medicare Limited-SML-US-2022-00833

PATIENT
  Age: 78 Year
  Sex: Female

DRUGS (1)
  1. CAPECITABINE [Suspect]
     Active Substance: CAPECITABINE
     Indication: Breast cancer female
     Route: 065

REACTIONS (2)
  - Constipation [Not Recovered/Not Resolved]
  - Tumour marker increased [Not Recovered/Not Resolved]
